FAERS Safety Report 8499615-3 (Version None)
Quarter: 2012Q2

REPORT INFORMATION
  Report Type: 
  Country: None (occurrence: None)
  Receive Date: 20120629
  Receipt Date: 20120621
  Transmission Date: 20120825
  Serious: Yes (Hospitalization, Disabling)
  Sender: FDA-Public Use
  Company Number: 2012S1000589

PATIENT
  Age: 51 Year
  Sex: Female
  Weight: 57 kg

DRUGS (2)
  1. LIVALO [Suspect]
     Indication: HYPERCHOLESTEROLAEMIA
     Dosage: 2 MG;1X;PO
     Route: 048
     Dates: start: 20110720, end: 20110801
  2. ZETIA [Suspect]
     Indication: HYPERCHOLESTEROLAEMIA
     Dosage: 10 MG;1X;PO
     Route: 048
     Dates: start: 20111201, end: 20120101

REACTIONS (6)
  - JOINT SWELLING [None]
  - MYALGIA [None]
  - MICROSCOPIC POLYANGIITIS [None]
  - ARTHRALGIA [None]
  - PROTEINURIA [None]
  - BLOOD URINE PRESENT [None]
